FAERS Safety Report 23176797 (Version 1)
Quarter: 2023Q4

REPORT INFORMATION
  Report Type: Spontaneous
  Country: US (occurrence: None)
  Receive Date: 20231110
  Receipt Date: 20231110
  Transmission Date: 20240110
  Serious: Yes (Other)
  Sender: FDA-Public Use
  Company Number: None

PATIENT
  Age: 43 Year
  Sex: Female
  Weight: 114.75 kg

DRUGS (16)
  1. MOUNJARO [Suspect]
     Active Substance: TIRZEPATIDE
     Indication: Weight decreased
     Dosage: OTHER QUANTITY : 1 INJECTION(S);?OTHER FREQUENCY : ONCE A WEEK;?
     Route: 058
     Dates: start: 20231109
  2. MOUNJARO [Suspect]
     Active Substance: TIRZEPATIDE
     Indication: Glucose tolerance impaired
  3. LAMOTRIGINE [Concomitant]
     Active Substance: LAMOTRIGINE
  4. TRILEPTAL [Concomitant]
     Active Substance: OXCARBAZEPINE
  5. GABAPENTIN [Concomitant]
     Active Substance: GABAPENTIN
  6. BUSPAR [Concomitant]
     Active Substance: BUSPIRONE HYDROCHLORIDE
  7. QUETIAPINE [Concomitant]
     Active Substance: QUETIAPINE
  8. CLONAZEPAM [Concomitant]
     Active Substance: CLONAZEPAM
  9. HYDROCODONE [Concomitant]
     Active Substance: HYDROCODONE
  10. Omega 3-ethyl esters [Concomitant]
  11. VITAMIN D NOS [Concomitant]
     Active Substance: VITAMIN D NOS
  12. ZOFRAN [Concomitant]
     Active Substance: ONDANSETRON HYDROCHLORIDE
  13. MAGNESIUM CHLORIDE\MAGNESIUM GLUCONATE [Concomitant]
     Active Substance: MAGNESIUM CHLORIDE\MAGNESIUM GLUCONATE
  14. MELATONIN [Concomitant]
     Active Substance: MELATONIN
  15. EXCEDRIN [Concomitant]
     Active Substance: ACETAMINOPHEN\ASPIRIN\CAFFEINE
  16. IBUPROFEN [Concomitant]
     Active Substance: IBUPROFEN

REACTIONS (12)
  - Middle insomnia [None]
  - Myalgia [None]
  - Musculoskeletal stiffness [None]
  - Chest discomfort [None]
  - Musculoskeletal stiffness [None]
  - Musculoskeletal stiffness [None]
  - Sunburn [None]
  - Insomnia [None]
  - Immune-mediated adverse reaction [None]
  - Drug ineffective [None]
  - Hunger [None]
  - Weight increased [None]

NARRATIVE: CASE EVENT DATE: 20231110
